FAERS Safety Report 23107845 (Version 1)
Quarter: 2023Q4

REPORT INFORMATION
  Report Type: Spontaneous
  Country: US (occurrence: US)
  Receive Date: 20231026
  Receipt Date: 20231026
  Transmission Date: 20240110
  Serious: Yes (Life-Threatening, Hospitalization, Other)
  Sender: FDA-Public Use
  Company Number: US-MLMSERVICE-20231005-4588481-1

PATIENT

DRUGS (1)
  1. AMIODARONE [Suspect]
     Active Substance: AMIODARONE
     Indication: Product used for unknown indication
     Dosage: DISCONTINUATION OF THE MEDICATION FOUR MONTHS PRIOR TO PRESENTATION
     Route: 065

REACTIONS (7)
  - Multiple organ dysfunction syndrome [Recovered/Resolved]
  - Arrhythmic storm [Recovered/Resolved]
  - Tachyarrhythmia [Recovered/Resolved]
  - Thyrotoxic crisis [Recovered/Resolved]
  - Cardiogenic shock [Recovered/Resolved]
  - Respiratory failure [Recovered/Resolved]
  - Hyperthyroidism [Recovered/Resolved]
